FAERS Safety Report 8603148-0 (Version None)
Quarter: 2012Q3

REPORT INFORMATION
  Report Type: 
  Country: None (occurrence: None)
  Receive Date: 20120817
  Receipt Date: 20120815
  Transmission Date: 20120928
  Serious: Yes (Other)
  Sender: FDA-Public Use
  Company Number: GXKR2012DE002617

PATIENT

DRUGS (8)
  1. ENOXAPARIN SODIUM [Concomitant]
     Dosage: 120 MG/DAY
     Route: 058
  2. TRAMADOL HCL [Concomitant]
     Dosage: 100 MG/DAY
     Route: 048
  3. MIRTAZAPINE [Concomitant]
     Dosage: 15 MG/DAY
     Route: 048
  4. CEFTRIAXONE [Suspect]
     Dosage: 2000 MG/DAY
     Route: 042
  5. ASPIRIN [Concomitant]
     Indication: PERIPHERAL ARTERIAL OCCLUSIVE DISEASE
     Dosage: 100 MG/DAY
     Route: 048
  6. BISOPROLOL [Concomitant]
     Dosage: 5 MG/DAY
     Route: 048
  7. PANTOPRAZOLE [Concomitant]
     Dosage: 80 MG, UNK
     Route: 048
  8. RAMIPRIL [Concomitant]
     Dosage: 5 MG/DAY
     Route: 048

REACTIONS (1)
  - DELIRIUM [None]
